FAERS Safety Report 7203553-3 (Version None)
Quarter: 2010Q4

REPORT INFORMATION
  Report Type: 
  Country: None (occurrence: None)
  Receive Date: 20101220
  Receipt Date: 20101210
  Transmission Date: 20110411
  Serious: Yes (Hospitalization)
  Sender: FDA-Public Use
  Company Number: 2010GW000952

PATIENT
  Age: 79 Year
  Sex: Male
  Weight: 88.1793 kg

DRUGS (1)
  1. ZYCLARA [Suspect]
     Indication: ACTINIC KERATOSIS
     Dosage: 3.75 PCT; QD; TOP
     Route: 061
     Dates: start: 20100820

REACTIONS (10)
  - APHASIA [None]
  - ASTHENIA [None]
  - BACK PAIN [None]
  - DIZZINESS [None]
  - FATIGUE [None]
  - GAIT DISTURBANCE [None]
  - LACUNAR INFARCTION [None]
  - PANCYTOPENIA [None]
  - SPLENOMEGALY [None]
  - SYNCOPE [None]
